FAERS Safety Report 4810057-1 (Version None)
Quarter: 2005Q4

REPORT INFORMATION
  Report Type: 
  Country: None (occurrence: None)
  Receive Date: 20051024
  Receipt Date: 20051013
  Transmission Date: 20060501
  Serious: Yes (Hospitalization)
  Sender: FDA-Public Use
  Company Number: 2005142129

PATIENT
  Sex: Male

DRUGS (1)
  1. DOXAZOSIN (DOXAZOSIN) [Suspect]
     Indication: HYPERTENSION
     Dosage: (EVERY DAY), ORAL
     Route: 048

REACTIONS (2)
  - CONDITION AGGRAVATED [None]
  - HYPERTENSIVE CRISIS [None]
